FAERS Safety Report 8948515 (Version 1)
Quarter: 2012Q4

REPORT INFORMATION
  Report Type: Spontaneous
  Country: ES (occurrence: None)
  Receive Date: 20121123
  Receipt Date: 20121123
  Transmission Date: 20130627
  Serious: Yes (Life-Threatening, Other)
  Sender: FDA-Public Use
  Company Number: 2012RR-61824

PATIENT
  Age: 52 Year
  Sex: Female

DRUGS (6)
  1. RISPERIDONE [Suspect]
     Indication: MAJOR DEPRESSION
  2. FLUOXETINE [Suspect]
  3. CLONAZEPAM (CLONAZEPAM) UNKNOWN [Suspect]
  4. PROPRANOLOL (PROPRANOLOL) UNKNOWN [Suspect]
  5. BIPERIDEN (BIPERIDEN) [Suspect]
  6. TETRABENAZINE (TETRABENAZINE) [Suspect]

REACTIONS (6)
  - Akathisia [None]
  - Suicidal ideation [None]
  - Fatigue [None]
  - Somnolence [None]
  - Depressive symptom [None]
  - Condition aggravated [None]
